FAERS Safety Report 10068741 (Version 2)
Quarter: 2014Q2

REPORT INFORMATION
  Report Type: Report from Study
  Country: UY (occurrence: UY)
  Receive Date: 20140409
  Receipt Date: 20140416
  Transmission Date: 20141212
  Serious: Yes (Other)
  Sender: FDA-Public Use
  Company Number: UY-BAYER-2014-053017

PATIENT
  Age: 51 Year
  Sex: Male

DRUGS (5)
  1. BETAFERON [Suspect]
     Indication: MULTIPLE SCLEROSIS
     Dosage: UNK
     Route: 058
     Dates: start: 20140324
  2. DIAFEN [Concomitant]
  3. PERINDAC [Concomitant]
  4. OXYBUTYNIN [Concomitant]
  5. VITAMIN D3 [Concomitant]

REACTIONS (4)
  - Abasia [Recovering/Resolving]
  - Body temperature increased [None]
  - Muscle spasticity [None]
  - Influenza like illness [None]
